FAERS Safety Report 8193983-8 (Version None)
Quarter: 2012Q1

REPORT INFORMATION
  Report Type: 
  Country: None (occurrence: None)
  Receive Date: 20120308
  Receipt Date: 20120305
  Transmission Date: 20120608
  Serious: Yes (Hospitalization, Other)
  Sender: FDA-Public Use
  Company Number: US-BAYER-2010-007088

PATIENT
  Age: 24 Year
  Sex: Female
  Weight: 104 kg

DRUGS (8)
  1. ZANTAC [Concomitant]
     Dosage: 150 MG, BID
     Dates: start: 20090427
  2. CARAFATE [Concomitant]
     Dosage: 1 MG, TID
  3. ACETAMINOPHEN [Concomitant]
     Dosage: UNK UNK, PRN
  4. TYLENOL W/ CODEINE [Concomitant]
     Indication: PAIN
  5. KINEVAC [Concomitant]
  6. DROSPIRENONE AND ETHINYL ESTRADIOL [Suspect]
     Indication: CONTRACEPTION
     Dosage: UNK
     Dates: start: 20081010, end: 20090813
  7. KAPIDEX [Concomitant]
     Dosage: 60 MG, QD
  8. PROTONIX [Concomitant]

REACTIONS (2)
  - CHOLECYSTECTOMY [None]
  - BILIARY COLIC [None]
